FAERS Safety Report 8825107 (Version 1)
Quarter: 2012Q4

REPORT INFORMATION
  Report Type: 
  Country: CL (occurrence: CL)
  Receive Date: 20121004
  Receipt Date: 20121004
  Transmission Date: 20130627
  Serious: Yes (Other)
  Sender: FDA-Public Use
  Company Number: CL-JNJFOC-20120912451

PATIENT
  Age: 72 Year
  Sex: Male

DRUGS (7)
  1. LEVOFLOXACIN [Suspect]
     Indication: ENTEROCOCCAL INFECTION
     Route: 065
  2. LEVOFLOXACIN [Suspect]
     Indication: STENOTROPHOMONAS INFECTION
     Route: 065
  3. COTRIMOXAZOLE [Suspect]
     Indication: ENTEROCOCCAL INFECTION
     Route: 065
  4. COTRIMOXAZOLE [Suspect]
     Indication: STENOTROPHOMONAS INFECTION
     Route: 065
  5. VITAMIN [Concomitant]
     Dosage: water soluble
     Route: 065
  6. AMLODIPINE [Concomitant]
     Route: 065
  7. VENOFER [Concomitant]
     Route: 065

REACTIONS (3)
  - Neurological symptom [Unknown]
  - Hypoglycaemia [Unknown]
  - Toxicity to various agents [Unknown]
